FAERS Safety Report 13646202 (Version 1)
Quarter: 2017Q2

REPORT INFORMATION
  Report Type: Spontaneous
  Country: US (occurrence: US)
  Receive Date: 20170612
  Receipt Date: 20170612
  Transmission Date: 20170830
  Serious: Yes (Disabling)
  Sender: FDA-Public Use
  Company Number: None

PATIENT
  Age: 41 Year
  Sex: Female
  Weight: 67.5 kg

DRUGS (4)
  1. PROZAC [Concomitant]
     Active Substance: FLUOXETINE HYDROCHLORIDE
  2. KLONOPIN [Concomitant]
     Active Substance: CLONAZEPAM
  3. LITHIUM. [Concomitant]
     Active Substance: LITHIUM
  4. ARIPRAZOLE [Suspect]
     Active Substance: ARIPIPRAZOLE
     Indication: BIPOLAR DISORDER
     Dosage: ?          QUANTITY:1 TABLET(S);?ORAL
     Route: 048
     Dates: start: 20170601

REACTIONS (5)
  - Back pain [None]
  - Arthralgia [None]
  - Oedema [None]
  - Musculoskeletal stiffness [None]
  - Vision blurred [None]

NARRATIVE: CASE EVENT DATE: 20170605
